FAERS Safety Report 20809277 (Version 1)
Quarter: 2022Q2

REPORT INFORMATION
  Report Type: Spontaneous
  Country: FR (occurrence: FR)
  Receive Date: 20220510
  Receipt Date: 20220510
  Transmission Date: 20220721
  Serious: Yes (Hospitalization)
  Sender: FDA-Public Use
  Company Number: FR-002147023-NVSC2022FR081284

PATIENT
  Age: 29 Year
  Sex: Female
  Weight: 80 kg

DRUGS (13)
  1. METHOTREXATE [Suspect]
     Active Substance: METHOTREXATE
     Indication: Product used for unknown indication
     Dosage: 30 MILLIGRAM, QD, (30 MG, QD)
     Route: 042
     Dates: start: 20210605, end: 20210605
  2. METHOTREXATE [Suspect]
     Active Substance: METHOTREXATE
     Dosage: 20 MILLIGRAM, QD, (20 MG, QD)
     Route: 042
     Dates: start: 20210607, end: 20210607
  3. METHOTREXATE [Suspect]
     Active Substance: METHOTREXATE
     Dosage: 20 MILLIGRAM, QD, (20 MG, QD)
     Route: 042
     Dates: start: 20210610, end: 20210610
  4. METHOTREXATE [Suspect]
     Active Substance: METHOTREXATE
     Dosage: 20 MILLIGRAM, QD, (20 MG, QD)
     Route: 042
     Dates: start: 20210615, end: 20210615
  5. CYCLOSPORINE [Suspect]
     Active Substance: CYCLOSPORINE
     Indication: Product used for unknown indication
     Dosage: 200 MILLIGRAM, QD, (200 MG, QD)
     Route: 042
     Dates: start: 20210601, end: 20210603
  6. CYCLOSPORINE [Suspect]
     Active Substance: CYCLOSPORINE
     Dosage: 175 MILLIGRAM, QD, (175 MG, QD)
     Route: 042
     Dates: start: 20210604, end: 20210604
  7. CYCLOSPORINE [Suspect]
     Active Substance: CYCLOSPORINE
     Dosage: 125 MILLIGRAM, QD, (125 MG, QD)
     Route: 042
     Dates: start: 20210605, end: 20210621
  8. CYCLOSPORINE [Suspect]
     Active Substance: CYCLOSPORINE
     Indication: Product used for unknown indication
     Dosage: 150 MILLIGRAM, QD, (150 MG, QD)
     Route: 048
     Dates: start: 20210602, end: 20211118
  9. THYMOGLOBULINE [Concomitant]
     Active Substance: LAPINE T-LYMPHOCYTE IMMUNE GLOBULIN
     Indication: Product used for unknown indication
     Dosage: 200 MILLIGRAM, QD, (200 MG, QD)
     Route: 042
     Dates: start: 20210602, end: 20210603
  10. BUSULFAN [Concomitant]
     Active Substance: BUSULFAN
     Indication: Product used for unknown indication
     Dosage: 216 MILLIGRAM, QD, (216 MG, QD)
     Route: 042
     Dates: start: 20210529, end: 20210601
  11. ACYCLOVIR [Concomitant]
     Active Substance: ACYCLOVIR
     Indication: Viral infection
     Dosage: 2 DOSAGE FORM, QD, (2 DOSAGE FORM, QD)
     Route: 048
  12. FLUDARABINE [Concomitant]
     Active Substance: FLUDARABINE PHOSPHATE
     Indication: Product used for unknown indication
     Dosage: 57.5 MILLIGRAM, QD, (57.5 MG, QD)
     Route: 042
     Dates: start: 20210529, end: 20210602
  13. BACTRIM [Concomitant]
     Active Substance: SULFAMETHOXAZOLE\TRIMETHOPRIM
     Indication: Pneumococcal infection
     Dosage: 3 DOSAGE FORM, QD
     Route: 048

REACTIONS (3)
  - COVID-19 [Recovered/Resolved]
  - Cough [Unknown]
  - Respiratory tract infection [Unknown]

NARRATIVE: CASE EVENT DATE: 20211222
